FAERS Safety Report 5489738-5 (Version None)
Quarter: 2007Q4

REPORT INFORMATION
  Report Type: 
  Country: None (occurrence: None)
  Receive Date: 20071018
  Receipt Date: 20071016
  Transmission Date: 20080405
  Serious: Yes (Death, Life-Threatening, Hospitalization, Disabling)
  Sender: FDA-Public Use
  Company Number: HQWYE002604SEP07

PATIENT
  Sex: Male

DRUGS (9)
  1. AMIODARONE HCL [Suspect]
     Indication: VENTRICULAR TACHYCARDIA
     Route: 048
     Dates: start: 20040201, end: 20070816
  2. LIPITOR [Concomitant]
     Dosage: DOSE AND FREQUENCY NOT SPECIFIED
     Route: 048
  3. DIOVAN [Concomitant]
     Route: 048
     Dates: start: 20040201
  4. AMARYL [Concomitant]
     Route: 048
     Dates: start: 20040201
  5. GLYBURIDE [Concomitant]
     Dosage: DOSE AND FREQUENCY NOT SPECIFIED
     Route: 048
  6. LASIX [Concomitant]
     Route: 048
     Dates: start: 20040201
  7. WARFARIN SODIUM [Concomitant]
     Route: 048
     Dates: start: 20040201
  8. ASPIRIN [Concomitant]
     Dosage: DOSE AND FREQUENCY NOT SPECIFIED
     Route: 048
  9. ACTOS [Concomitant]
     Route: 048
     Dates: start: 20070101

REACTIONS (3)
  - CYTOMEGALOVIRUS INFECTION [None]
  - DRUG EFFECT DECREASED [None]
  - INTERSTITIAL LUNG DISEASE [None]
